FAERS Safety Report 25893510 (Version 1)
Quarter: 2025Q4

REPORT INFORMATION
  Report Type: Spontaneous
  Country: US (occurrence: US)
  Receive Date: 20251008
  Receipt Date: 20251008
  Transmission Date: 20260118
  Serious: No
  Sender: ZYDUS PHARM
  Company Number: US-CADILA HEALTHCARE LIMITED-US-ZYDUS-129047

PATIENT

DRUGS (3)
  1. MESALAMINE [Suspect]
     Active Substance: MESALAMINE
     Indication: Proctitis
     Dosage: 1000 MILLIGRAM
     Route: 054
     Dates: start: 20250718, end: 202509
  2. MESALAMINE [Suspect]
     Active Substance: MESALAMINE
     Indication: Colitis
  3. MESALAMINE [Suspect]
     Active Substance: MESALAMINE
     Indication: Off label use

REACTIONS (4)
  - Product substitution issue [Recovered/Resolved]
  - Manufacturing issue [Recovered/Resolved]
  - Product residue present [Recovered/Resolved]
  - Product solubility abnormal [Recovered/Resolved]

NARRATIVE: CASE EVENT DATE: 20250701
